FAERS Safety Report 8246372-1 (Version None)
Quarter: 2012Q1

REPORT INFORMATION
  Report Type: 
  Country: None (occurrence: None)
  Receive Date: 20120330
  Receipt Date: 20120322
  Transmission Date: 20120608
  Serious: Yes (Hospitalization)
  Sender: FDA-Public Use
  Company Number: US-ASTELLAS-2012US003136

PATIENT
  Sex: Female
  Weight: 45 kg

DRUGS (1)
  1. ERLOTINIB HYDROCHLORIDE [Suspect]
     Indication: NON-SMALL CELL LUNG CANCER
     Dosage: UNK
     Route: 048
     Dates: start: 20120101

REACTIONS (6)
  - DYSURIA [None]
  - OEDEMA PERIPHERAL [None]
  - DIARRHOEA [None]
  - DECREASED APPETITE [None]
  - WEIGHT DECREASED [None]
  - RASH [None]
